FAERS Safety Report 5939945-X (Version None)
Quarter: 2008Q4

REPORT INFORMATION
  Report Type: 
  Country: None (occurrence: None)
  Receive Date: 20081031
  Receipt Date: 20081031
  Transmission Date: 20090506
  Serious: Yes (Other)
  Sender: FDA-Public Use
  Company Number: None

PATIENT
  Age: 48 Year
  Sex: Female
  Weight: 65.7716 kg

DRUGS (1)
  1. CHANTIX [Suspect]
     Indication: SMOKING CESSATION THERAPY
     Dosage: 0.5 MG FOR FIRST WEEK PO
     Route: 048
     Dates: start: 20080613, end: 20080702

REACTIONS (4)
  - DEPRESSION [None]
  - DYSPHAGIA [None]
  - MOOD SWINGS [None]
  - PHARYNGEAL OEDEMA [None]
